FAERS Safety Report 9997869 (Version 1)
Quarter: 2014Q1

REPORT INFORMATION
  Report Type: Spontaneous
  Country: DE (occurrence: DE)
  Receive Date: 20140311
  Receipt Date: 20140311
  Transmission Date: 20141002
  Serious: Yes (Hospitalization, Congenital Anomaly, Other)
  Sender: FDA-Public Use
  Company Number: DE-PFIZER INC-2014064483

PATIENT
  Age: 1 Day
  Sex: Male
  Weight: 3.64 kg

DRUGS (3)
  1. VENLAFAXINE HCL [Suspect]
     Indication: DEPRESSION
     Dosage: 150 MG, DAILY, GESTATIONAL WEEK 0 TILL 8+0
     Route: 064
     Dates: start: 20121010
  2. VENLAFAXINE HCL [Suspect]
     Dosage: 75 MG, DAILY, GESTATIONAL WEEK 8+0 UNTIL DELIVERY
     Route: 064
  3. FOLIO FORTE [Concomitant]
     Indication: PROPHYLAXIS OF NEURAL TUBE DEFECT
     Dosage: 0.8 MG, DAILY, GESTATIONAL WEEK 5 TO 37+6
     Route: 064

REACTIONS (7)
  - Maternal exposure during pregnancy [Recovered/Resolved]
  - Neonatal respiratory distress syndrome [Recovered/Resolved]
  - Patent ductus arteriosus [Recovered/Resolved]
  - Atrial septal defect [Recovered/Resolved]
  - Feeding disorder neonatal [Recovered/Resolved]
  - Agitation neonatal [Recovered/Resolved]
  - Restlessness [Recovered/Resolved]
